FAERS Safety Report 16832999 (Version 1)
Quarter: 2019Q3

REPORT INFORMATION
  Report Type: Spontaneous
  Country: US (occurrence: US)
  Receive Date: 20190731
  Receipt Date: 20190731
  Transmission Date: 20191005
  Serious: No
  Sender: FDA-Public Use
  Company Number: None

PATIENT
  Age: 60 Year
  Sex: Male

DRUGS (1)
  1. COSENTYX [Suspect]
     Active Substance: SECUKINUMAB
     Indication: PSORIASIS
     Dosage: ?          OTHER FREQUENCY:2 SYR.EVERY 4 WKS;?
     Route: 058
     Dates: start: 20180108

REACTIONS (1)
  - Arthralgia [None]

NARRATIVE: CASE EVENT DATE: 20190625
